FAERS Safety Report 5395017-7 (Version None)
Quarter: 2007Q3

REPORT INFORMATION
  Report Type: 
  Country: None (occurrence: None)
  Receive Date: 20070724
  Receipt Date: 20070718
  Transmission Date: 20080115
  Serious: Yes (Hospitalization)
  Sender: FDA-Public Use
  Company Number: FR-JNJFOC-20070703871

PATIENT
  Age: 86 Year
  Sex: Female

DRUGS (9)
  1. TAVANIC [Suspect]
     Indication: BRONCHITIS
     Route: 048
  2. SEROPLEX [Suspect]
     Indication: DRUG USE FOR UNKNOWN INDICATION
     Route: 048
  3. ZYPREXA [Suspect]
     Indication: DRUG USE FOR UNKNOWN INDICATION
     Route: 048
  4. ALPRAZOLAM [Suspect]
     Indication: DRUG USE FOR UNKNOWN INDICATION
     Route: 065
  5. LEPTICUR [Suspect]
     Indication: DRUG USE FOR UNKNOWN INDICATION
     Route: 042
  6. ZAMUDOL [Suspect]
     Indication: PAIN
     Route: 048
  7. FUROSEMIDE [Concomitant]
     Route: 065
  8. FORLAX [Concomitant]
     Route: 065
  9. ACETAMINOPHEN [Concomitant]
     Route: 065

REACTIONS (2)
  - DISTURBANCE IN ATTENTION [None]
  - FALL [None]
